FAERS Safety Report 17867486 (Version 2)
Quarter: 2022Q1

REPORT INFORMATION
  Report Type: Other
  Country: PL (occurrence: None)
  Receive Date: 20200605
  Receipt Date: 20220218
  Transmission Date: 20220423
  Serious: Yes (Hospitalization)
  Sender: FDA-Public Use
  Company Number: PL-EMA-DD-20200518-FAIZAN_M-153542

PATIENT
  Age: 39 Year
  Sex: Male

DRUGS (1)
  1. METFORMIN [Suspect]
     Active Substance: METFORMIN HYDROCHLORIDE
     Indication: Diabetes mellitus
     Route: 065

REACTIONS (7)
  - MELAS syndrome [Recovering/Resolving]
  - Psychomotor hyperactivity [Recovering/Resolving]
  - Aphasia [Recovering/Resolving]
  - Speech disorder [Recovering/Resolving]
  - Cardiomyopathy [Recovering/Resolving]
  - Left ventricular hypertrophy [Recovering/Resolving]
  - Oedema [Recovering/Resolving]

NARRATIVE: CASE EVENT DATE: 20180101
